FAERS Safety Report 5365759-8 (Version None)
Quarter: 2007Q2

REPORT INFORMATION
  Report Type: 
  Country: None (occurrence: None)
  Receive Date: 20070611
  Receipt Date: 20070320
  Transmission Date: 20071010
  Serious: Yes (Hospitalization)
  Sender: FDA-Public Use
  Company Number: USA-2007-0026816

PATIENT
  Age: 47 Year
  Sex: Female
  Weight: 106.1 kg

DRUGS (15)
  1. OXYCONTIN [Suspect]
     Indication: PAIN
     Dosage: 40 MG, SEE TEXT, ORAL
     Route: 048
  2. LYRICA [Concomitant]
  3. CYMBALTA [Concomitant]
  4. AVANDIA [Concomitant]
  5. POTASSIUM CHLORIDE [Concomitant]
  6. LOPRESSOR [Concomitant]
  7. REMERON [Concomitant]
  8. NEXIUM [Concomitant]
  9. LASIX [Concomitant]
  10. LIDODERM [Concomitant]
  11. ALLOPURINOL [Concomitant]
  12. ABILIFY [Concomitant]
  13. MIRALAX [Concomitant]
  14. FLAGYL [Concomitant]
  15. VICODIN [Concomitant]

REACTIONS (2)
  - INCORRECT DOSE ADMINISTERED [None]
  - UNRESPONSIVE TO STIMULI [None]
